FAERS Safety Report 10372022 (Version 2)
Quarter: 2014Q3

REPORT INFORMATION
  Report Type: Spontaneous
  Country: JP (occurrence: JP)
  Receive Date: 20140808
  Receipt Date: 20140808
  Transmission Date: 20150326
  Serious: Yes (Hospitalization, Other)
  Sender: FDA-Public Use
  Company Number: JP-JNJFOC-20060606726

PATIENT
  Age: 83 Year
  Sex: Female

DRUGS (2)
  1. RISPERDAL [Suspect]
     Active Substance: RISPERIDONE
     Indication: SEDATION
     Route: 048
     Dates: start: 20060320, end: 20060320
  2. RISPERDAL [Suspect]
     Active Substance: RISPERIDONE
     Indication: DEMENTIA
     Route: 048
     Dates: start: 20060320, end: 20060320

REACTIONS (10)
  - Pneumonia aspiration [Unknown]
  - Aspiration [Unknown]
  - Neuroleptic malignant syndrome [Unknown]
  - Off label use [Unknown]
  - Cerebrovascular disorder [Unknown]
  - Hyperreflexia [Unknown]
  - Depressed level of consciousness [Unknown]
  - Pyrexia [Unknown]
  - Muscle rigidity [Unknown]
  - Extrapyramidal disorder [Unknown]

NARRATIVE: CASE EVENT DATE: 200603
